FAERS Safety Report 22060162 (Version 1)
Quarter: 2023Q1

REPORT INFORMATION
  Report Type: Spontaneous
  Country: US (occurrence: None)
  Receive Date: 20230303
  Receipt Date: 20230303
  Transmission Date: 20230417
  Serious: Yes (Hospitalization)
  Sender: FDA-Public Use
  Company Number: None

PATIENT
  Age: 87 Year

DRUGS (1)
  1. ABIRATERONE [Suspect]
     Active Substance: ABIRATERONE
     Dosage: FREQUENCY : DAILY;?
     Route: 048

REACTIONS (5)
  - Fall [None]
  - Cerebral haemorrhage [None]
  - COVID-19 [None]
  - Therapy interrupted [None]
  - Hot flush [None]

NARRATIVE: CASE EVENT DATE: 20230303
